FAERS Safety Report 9540189 (Version 1)
Quarter: 2013Q2

REPORT INFORMATION
  Report Type: Spontaneous
  Country: US (occurrence: None)
  Receive Date: 20130503
  Receipt Date: 20130503
  Transmission Date: 20140414
  Serious: No
  Sender: FDA-Public Use
  Company Number: 100043012

PATIENT
  Sex: 0

DRUGS (3)
  1. DALIRESP (ROFLUMILAST) [Suspect]
     Indication: BRONCHIECTASIS
  2. SPIRIVA (TIOTROPIUM BROMIDE) (TIOTROPIUM BROMIDE) [Concomitant]
  3. SYMBICORT (BUDESONIDE, FORMOTEROL FUMARATE) (BUDESONIDE, FORMOTEROL FUMARATE) [Concomitant]

REACTIONS (2)
  - Drug ineffective [None]
  - Off label use [None]
